FAERS Safety Report 4895114-6 (Version None)
Quarter: 2006Q1

REPORT INFORMATION
  Report Type: 
  Country: None (occurrence: None)
  Receive Date: 20060126
  Receipt Date: 20060126
  Transmission Date: 20060701
  Serious: Yes (Hospitalization, Other)
  Sender: FDA-Public Use
  Company Number: None

PATIENT
  Sex: Female
  Weight: 62 kg

DRUGS (6)
  1. DOXORUBICIN HCL [Suspect]
     Indication: HODGKIN'S DISEASE
     Dosage: SEE IMAGE
     Route: 042
     Dates: start: 20051229, end: 20060112
  2. DOXORUBICIN HCL [Suspect]
     Indication: HODGKIN'S DISEASE
     Dosage: SEE IMAGE
     Route: 042
     Dates: start: 20051201
  3. VINBLASTINE [Suspect]
     Dosage: SEE IMAGE
     Route: 042
     Dates: start: 20051229, end: 20060112
  4. VINBLASTINE [Suspect]
     Dosage: SEE IMAGE
     Route: 042
     Dates: start: 20051201
  5. GEMCITABINE [Suspect]
     Dosage: SEE IMAGE
     Dates: start: 20051229, end: 20060112
  6. GEMCITABINE [Suspect]
     Dosage: SEE IMAGE
     Dates: start: 20051201

REACTIONS (2)
  - AXILLARY PAIN [None]
  - OEDEMA PERIPHERAL [None]
